FAERS Safety Report 8480384-8 (Version None)
Quarter: 2012Q3

REPORT INFORMATION
  Report Type: 
  Country: None (occurrence: None)
  Receive Date: 20120702
  Receipt Date: 20120621
  Transmission Date: 20120928
  Serious: Yes (Death, Hospitalization, Other)
  Sender: FDA-Public Use
  Company Number: LB-ROCHE-1080570

PATIENT
  Sex: Male

DRUGS (3)
  1. OXALIPLATIN [Concomitant]
     Indication: COLORECTAL CANCER METASTATIC
     Route: 042
     Dates: start: 20110404, end: 20120411
  2. CAPECITABINE [Concomitant]
     Indication: COLORECTAL CANCER METASTATIC
     Route: 048
     Dates: start: 20110401, end: 20120501
  3. AVASTIN [Suspect]
     Indication: COLORECTAL CANCER METASTATIC
     Route: 042
     Dates: start: 20110404, end: 20120411

REACTIONS (4)
  - URINARY TRACT INFECTION [None]
  - CONFUSIONAL STATE [None]
  - DYSPNOEA [None]
  - GENERAL PHYSICAL CONDITION ABNORMAL [None]
